FAERS Safety Report 7078406-4 (Version None)
Quarter: 2010Q4

REPORT INFORMATION
  Report Type: 
  Country: None (occurrence: None)
  Receive Date: 20101101
  Receipt Date: 20101101
  Transmission Date: 20110411
  Serious: Yes (Other)
  Sender: FDA-Public Use
  Company Number: None

PATIENT
  Age: 46 Year
  Sex: Male

DRUGS (1)
  1. DILAUDID [Suspect]
     Indication: PAIN
     Dosage: 2MG ONCE IV BOLUS
     Route: 040
     Dates: start: 20100715, end: 20100715

REACTIONS (1)
  - RESPIRATORY DEPRESSION [None]
